FAERS Safety Report 20477385 (Version 1)
Quarter: 2022Q1

REPORT INFORMATION
  Report Type: Spontaneous
  Country: IE (occurrence: IE)
  Receive Date: 20220215
  Receipt Date: 20220215
  Transmission Date: 20220423
  Serious: Yes (Hospitalization)
  Sender: FDA-Public Use
  Company Number: IE-SUN PHARMACEUTICAL INDUSTRIES LTD-2022R1-326353

PATIENT
  Age: 12 Year
  Sex: Female

DRUGS (1)
  1. BUPRENORPHINE [Suspect]
     Active Substance: BUPRENORPHINE
     Indication: Product used for unknown indication
     Dosage: 10MG/10 MICROGRAM/H
     Route: 062

REACTIONS (6)
  - Toxicity to various agents [Unknown]
  - Accidental exposure to product [Unknown]
  - Oscillopsia [Unknown]
  - Dizziness [Unknown]
  - Loss of consciousness [Unknown]
  - Asthenia [Unknown]
